FAERS Safety Report 9305946 (Version 2)
Quarter: 2013Q2

REPORT INFORMATION
  Report Type: Report from Study
  Country: FR (occurrence: FR)
  Receive Date: 20130523
  Receipt Date: 20130621
  Transmission Date: 20140414
  Serious: Yes (Hospitalization)
  Sender: FDA-Public Use
  Company Number: FR-PFIZER INC-2013147500

PATIENT
  Age: 71 Year
  Sex: Male

DRUGS (1)
  1. SIROLIMUS [Suspect]
     Indication: SKIN CANCER
     Dosage: UNK
     Route: 048

REACTIONS (1)
  - Bursitis [Recovered/Resolved]
